FAERS Safety Report 25887828 (Version 1)
Quarter: 2025Q4

REPORT INFORMATION
  Report Type: Report from Study
  Country: CR (occurrence: CR)
  Receive Date: 20251007
  Receipt Date: 20251007
  Transmission Date: 20260118
  Serious: Yes (Death)
  Sender: BIOVITRUM
  Company Number: CR-AstraZeneca-CH-00963392A

PATIENT
  Age: 8 Month
  Sex: Male

DRUGS (1)
  1. PALIVIZUMAB [Suspect]
     Active Substance: PALIVIZUMAB
     Indication: Antiviral prophylaxis
     Dosage: UNK
     Route: 030
     Dates: start: 20250910

REACTIONS (1)
  - Death [Fatal]

NARRATIVE: CASE EVENT DATE: 20250923
